FAERS Safety Report 7628894-7 (Version None)
Quarter: 2011Q3

REPORT INFORMATION
  Report Type: 
  Country: None (occurrence: None)
  Receive Date: 20110722
  Receipt Date: 20110715
  Transmission Date: 20111222
  Serious: Yes (Other)
  Sender: FDA-Public Use
  Company Number: US-BAYER-2011-062577

PATIENT
  Age: 23 Year
  Sex: Female

DRUGS (1)
  1. YAZ [Suspect]
     Dosage: UNK
     Dates: start: 20071227, end: 20080301

REACTIONS (6)
  - EMOTIONAL DISTRESS [None]
  - BILIARY DYSKINESIA [None]
  - BILIARY COLIC [None]
  - ABDOMINAL PAIN [None]
  - INJURY [None]
  - PAIN [None]
